FAERS Safety Report 5195766-X (Version None)
Quarter: 2006Q4

REPORT INFORMATION
  Report Type: 
  Country: None (occurrence: None)
  Receive Date: 20061227
  Receipt Date: 20061207
  Transmission Date: 20070319
  Serious: Yes (Other)
  Sender: FDA-Public Use
  Company Number: VNL_0332_2006

PATIENT
  Age: 81 Year
  Sex: Male
  Weight: 65.7716 kg

DRUGS (10)
  1. APOKYN [Suspect]
     Indication: PARKINSON'S DISEASE
     Dosage: VAR VARIABLE SC
     Route: 058
     Dates: start: 20061113, end: 20061209
  2. TIGAN [Suspect]
     Indication: VOMITING
     Dosage: 300 MG TID PO
     Route: 048
     Dates: start: 20061109, end: 20061124
  3. TIGAN [Suspect]
     Indication: VOMITING
     Dosage: 300 MG ONCE PO
     Route: 048
     Dates: start: 20061207, end: 20061207
  4. CARBIDOPA/LEVODOPA ER 50/200 [Concomitant]
  5. CARBIDOPA/LEVODOPA 25/25 [Concomitant]
  6. SANCTURA [Concomitant]
  7. ARICEPT [Concomitant]
  8. MULTI-VITAMIN [Concomitant]
  9. CALCIUM [Concomitant]
  10. ASCORBIC ACID [Concomitant]

REACTIONS (6)
  - ABNORMAL BEHAVIOUR [None]
  - BLOOD PRESSURE DECREASED [None]
  - CONDITION AGGRAVATED [None]
  - DEMENTIA [None]
  - DRUG INEFFECTIVE [None]
  - SOMNOLENCE [None]
